FAERS Safety Report 23648835 (Version 1)
Quarter: 2024Q1

REPORT INFORMATION
  Report Type: Spontaneous
  Country: US (occurrence: US)
  Receive Date: 20240319
  Receipt Date: 20240319
  Transmission Date: 20240410
  Serious: Yes (Hospitalization, Other)
  Sender: FDA-Public Use
  Company Number: US-FreseniusKabi-FK202404255

PATIENT
  Age: 62 Year
  Sex: Male

DRUGS (4)
  1. DOXYCYCLINE [Suspect]
     Active Substance: DOXYCYCLINE
     Indication: Pleurodesis
  2. DOXYCYCLINE [Suspect]
     Active Substance: DOXYCYCLINE
     Indication: Pneumothorax
  3. SODIUM CHLORIDE [Concomitant]
     Active Substance: SODIUM CHLORIDE
     Indication: Pneumothorax
  4. 0.75 percent bupivacaine [Concomitant]
     Indication: Pneumothorax
     Dosage: 20ML OF 0.75% BUPIVACAINE

REACTIONS (2)
  - Pulmonary toxicity [Recovering/Resolving]
  - Acute respiratory failure [Recovering/Resolving]
